FAERS Safety Report 6370991-0 (Version None)
Quarter: 2009Q3

REPORT INFORMATION
  Report Type: 
  Country: None (occurrence: None)
  Receive Date: 20090923
  Receipt Date: 20090916
  Transmission Date: 20100115
  Serious: Yes (Hospitalization)
  Sender: FDA-Public Use
  Company Number: JP-NOVOPROD-291814

PATIENT
  Age: 23 Year
  Sex: Female

DRUGS (2)
  1. NOVORAPID CHU FLEXPEN [Suspect]
     Indication: TYPE 1 DIABETES MELLITUS
  2. LANTUS [Concomitant]
     Indication: TYPE 1 DIABETES MELLITUS

REACTIONS (5)
  - ALTERED STATE OF CONSCIOUSNESS [None]
  - CONDITION AGGRAVATED [None]
  - HYPOGLYCAEMIA [None]
  - INSULIN AUTOIMMUNE SYNDROME [None]
  - INTENTIONAL OVERDOSE [None]
